FAERS Safety Report 22200300 (Version 2)
Quarter: 2023Q2

REPORT INFORMATION
  Report Type: Spontaneous
  Country: CN (occurrence: CN)
  Receive Date: 20230412
  Receipt Date: 20230414
  Transmission Date: 20230722
  Serious: Yes (Other)
  Sender: FDA-Public Use
  Company Number: CN-002147023-NVSC2023CN081387

PATIENT
  Age: 38 Year
  Sex: Male
  Weight: 122 kg

DRUGS (1)
  1. SACUBITRIL\VALSARTAN [Suspect]
     Active Substance: SACUBITRIL\VALSARTAN
     Indication: Hypertension
     Dosage: 100 MG, BID
     Route: 048
     Dates: start: 20230314, end: 20230314

REACTIONS (2)
  - Diabetes insipidus [Unknown]
  - Urine output increased [Recovering/Resolving]

NARRATIVE: CASE EVENT DATE: 20230314
